FAERS Safety Report 9815485 (Version 2)
Quarter: 2014Q1

REPORT INFORMATION
  Report Type: Spontaneous
  Country: US (occurrence: US)
  Receive Date: 20140114
  Receipt Date: 20140217
  Transmission Date: 20141002
  Serious: Yes (Hospitalization)
  Sender: FDA-Public Use
  Company Number: US-PFIZER INC-2014004859

PATIENT
  Age: 27 Year
  Sex: Female

DRUGS (27)
  1. XALKORI [Suspect]
     Indication: LUNG NEOPLASM MALIGNANT
     Dosage: 250 MG, 2X/DAY
     Route: 048
     Dates: start: 20131024, end: 20131125
  2. ACETAZOLAMIDE [Concomitant]
     Dosage: 250 MG, 2X/DAY
     Route: 048
  3. XANAX [Concomitant]
     Indication: ANXIETY
     Dosage: 1 MG, TID, AS NEEDED
     Route: 048
  4. AMITRIPTYLINE [Concomitant]
     Dosage: 100 MG, 1X/DAY, AT BEDTIME
     Route: 048
  5. FIORICET [Concomitant]
     Indication: MIGRAINE
     Dosage: 1 DF (TABLET), 1X/DAY, AS NEEDED
     Route: 048
  6. CELEXA [Concomitant]
     Dosage: 10 MG, 1X/DAY
     Route: 048
  7. FLEXERIL [Concomitant]
     Dosage: 5 MG, UNK
     Route: 048
  8. DEXAMETHASONE [Concomitant]
     Dosage: 4 MG, 2X/DAY
     Route: 048
  9. FOLIC ACID [Concomitant]
     Dosage: 1 MG, 1X/DAY
     Route: 048
  10. EMLA CREAM [Concomitant]
     Dosage: 1 APPL TOP 1-2 HOURS PRIOR TO ACCESSING PORT
     Route: 061
  11. REGLAN [Concomitant]
     Indication: NAUSEA
     Dosage: 10 MG, QID, AS NEEDED
     Route: 048
  12. MAGIC MOUTHWASH [Concomitant]
     Indication: ORAL PAIN
     Dosage: 10 ML, AS NEEDED
     Route: 048
  13. MORPHINE [Concomitant]
     Indication: PAIN
     Dosage: 30 MG, Q6H, AS NEEDED
     Route: 048
  14. NAPROSYN [Concomitant]
     Dosage: 375 MG, 2X/DAY
     Route: 048
  15. ZOFRAN [Concomitant]
     Indication: NAUSEA
     Dosage: 8 MG, Q8H, AS NEEDED
     Route: 048
  16. PROTONIX [Concomitant]
     Dosage: 40 MG, 1X/DAY
     Route: 048
  17. VALTREX [Concomitant]
     Dosage: 1 G, 1X/DAY
     Route: 048
  18. SYMBICORT [Concomitant]
     Dosage: 1 PUFF, INHALED, BID
     Route: 055
  19. CALCIUM WITH VITAMIN D [Concomitant]
     Dosage: 600-400 MG, BID
     Route: 048
  20. DOCUSATE SODIUM [Concomitant]
     Dosage: 100 MG, 2X/DAY
     Route: 048
  21. FLONASE [Concomitant]
     Dosage: 0.05 MG/INH NASAL SPRAY, 1 SPRAY(S), BID
     Route: 055
  22. LACTULOSE [Concomitant]
     Dosage: 5 ML, TID
  23. LORATADINE [Concomitant]
     Dosage: 10 MG, 1X/DAY
     Route: 048
  24. MS CONTIN [Concomitant]
     Dosage: 200 MG, 2X/DAY (EVERY 12 H)
     Route: 048
  25. MSIR [Concomitant]
     Indication: PAIN
     Dosage: 60 MG, Q6H, PRN
     Route: 048
  26. SENNA [Concomitant]
     Dosage: 2 DF (TABLETS) 1X/DAY
     Route: 048
  27. LOVENOX [Concomitant]
     Dosage: 100 MG = 1 ML, Q12H
     Route: 058

REACTIONS (3)
  - Pulmonary embolism [Recovered/Resolved]
  - Disease progression [Unknown]
  - Lung neoplasm malignant [Unknown]
